FAERS Safety Report 4478922-5 (Version None)
Quarter: 2004Q4

REPORT INFORMATION
  Report Type: 
  Country: None (occurrence: None)
  Receive Date: 20041014
  Receipt Date: 20041001
  Transmission Date: 20050328
  Serious: Yes (Life-Threatening, Other)
  Sender: FDA-Public Use
  Company Number: 2004074227

PATIENT
  Sex: Female

DRUGS (1)
  1. SULPERAZON (CEFOPERAZONE, SULBACTAM) [Suspect]
     Indication: ILL-DEFINED DISORDER
     Dates: end: 20041001

REACTIONS (3)
  - DRUG HYPERSENSITIVITY [None]
  - RESUSCITATION [None]
  - SHOCK [None]
